FAERS Safety Report 4802120-6 (Version None)
Quarter: 2005Q4

REPORT INFORMATION
  Report Type: 
  Country: None (occurrence: None)
  Receive Date: 20051018
  Receipt Date: 20051010
  Transmission Date: 20060501
  Serious: Yes (Hospitalization)
  Sender: FDA-Public Use
  Company Number: PHRM2005FR02701

PATIENT
  Age: 74 Year
  Sex: Female

DRUGS (11)
  1. FRACTAL [Suspect]
     Indication: HYPERCHOLESTEROLAEMIA
     Dosage: 80 MG, QD
     Route: 048
     Dates: start: 20050501
  2. VITAMIN A [Concomitant]
  3. REFRESH [Concomitant]
  4. NORMACOL [Concomitant]
  5. CORTANCYL [Concomitant]
  6. SELOKEN - SLOW RELEASE [Suspect]
     Indication: HYPERTENSION
     Dosage: 200 MG, QD
     Route: 048
  7. EFFERALGAN [Suspect]
     Dosage: 500 MG, TID
     Route: 048
  8. ALPRAZOLAM [Suspect]
     Dosage: 0.5 MG, QD
     Route: 048
  9. LAROXYL [Suspect]
     Route: 048
  10. AMLOR [Concomitant]
     Dosage: 5 MG, QD
     Route: 048
  11. ZOLPIDEM TARTRATE [Concomitant]
     Dosage: 2 DF/DAY
     Route: 048

REACTIONS (4)
  - BLOOD CREATINE PHOSPHOKINASE INCREASED [None]
  - MYALGIA [None]
  - MYOGLOBIN BLOOD INCREASED [None]
  - SJOGREN'S SYNDROME [None]
